FAERS Safety Report 9637694 (Version 3)
Quarter: 2013Q4

REPORT INFORMATION
  Report Type: Spontaneous
  Country: JP (occurrence: JP)
  Receive Date: 20131022
  Receipt Date: 20131106
  Transmission Date: 20140711
  Serious: Yes (Hospitalization, Other)
  Sender: FDA-Public Use
  Company Number: JP-PFIZER INC-2013258808

PATIENT
  Sex: Male

DRUGS (1)
  1. LYRICA [Suspect]
     Indication: PAIN
     Dosage: 150 MG, DAILY
     Route: 048
     Dates: end: 201309

REACTIONS (4)
  - Intentional drug misuse [Recovered/Resolved]
  - Hallucination [Recovered/Resolved]
  - Diabetes mellitus [Unknown]
  - Disorientation [Recovered/Resolved]
